FAERS Safety Report 13478864 (Version 1)
Quarter: 2017Q2

REPORT INFORMATION
  Report Type: Spontaneous
  Country: KR (occurrence: KI)
  Receive Date: 20170425
  Receipt Date: 20170425
  Transmission Date: 20170830
  Serious: Yes (Hospitalization)
  Sender: FDA-Public Use
  Company Number: KR-ABBVIE-17P-090-1949987-00

PATIENT
  Age: 43 Year
  Sex: Male

DRUGS (1)
  1. ADALIMUMAB [Suspect]
     Active Substance: ADALIMUMAB
     Indication: COLITIS ULCERATIVE
     Dosage: 40MG FOR 2 DAYS AND THEN REPEATED 2 WEEKS LATER.
     Route: 065

REACTIONS (2)
  - Central nervous system lesion [Recovered/Resolved]
  - Insomnia [Unknown]
